FAERS Safety Report 12087953 (Version 1)
Quarter: 2016Q1

REPORT INFORMATION
  Report Type: Spontaneous
  Country: US (occurrence: US)
  Receive Date: 20160217
  Receipt Date: 20160217
  Transmission Date: 20160526
  Serious: Yes (Hospitalization)
  Sender: FDA-Public Use
  Company Number: US-TAKEDA-2016TUS002539

PATIENT

DRUGS (2)
  1. HUMIRA [Suspect]
     Active Substance: ADALIMUMAB
     Indication: CROHN^S DISEASE
     Route: 058
  2. ENTYVIO [Suspect]
     Active Substance: VEDOLIZUMAB
     Indication: CROHN^S DISEASE
     Route: 065

REACTIONS (12)
  - Depression [Unknown]
  - Hospitalisation [Unknown]
  - Weight decreased [Unknown]
  - Defaecation urgency [Unknown]
  - Tearfulness [Unknown]
  - Fear [Unknown]
  - Pain of skin [Unknown]
  - Anxiety [Unknown]
  - Pain [Unknown]
  - Anger [Unknown]
  - Fatigue [Unknown]
  - Drug ineffective [Unknown]
